FAERS Safety Report 9201385 (Version 1)
Quarter: 2013Q2

REPORT INFORMATION
  Report Type: Spontaneous
  Country: FR (occurrence: FR)
  Receive Date: 20130401
  Receipt Date: 20130401
  Transmission Date: 20140414
  Serious: Yes (Hospitalization)
  Sender: FDA-Public Use
  Company Number: FR-SANOFI-AVENTIS-2013SA031081

PATIENT
  Age: 82 Year
  Sex: Female

DRUGS (5)
  1. PLAVIX [Suspect]
     Indication: PRODUCT USED FOR UNKNOWN INDICATION
     Dosage: STRENGTH: 75 MG
     Route: 048
     Dates: start: 20130131, end: 20130215
  2. TAHOR [Suspect]
     Indication: PRODUCT USED FOR UNKNOWN INDICATION
     Route: 048
     Dates: start: 20130131
  3. CARDENSIEL [Concomitant]
     Indication: CARDIAC FAILURE
     Route: 048
  4. EUPANTOL [Concomitant]
     Route: 048
  5. KARDEGIC [Concomitant]
     Route: 048
     Dates: start: 20130131, end: 20130214

REACTIONS (5)
  - Drug reaction with eosinophilia and systemic symptoms [Recovered/Resolved]
  - Rash [Recovered/Resolved]
  - Pyrexia [Recovering/Resolving]
  - Renal failure [Recovered/Resolved]
  - Eosinophilia [Unknown]
